FAERS Safety Report 15689135 (Version 1)
Quarter: 2018Q4

REPORT INFORMATION
  Report Type: Spontaneous
  Country: US (occurrence: US)
  Receive Date: 20181205
  Receipt Date: 20181205
  Transmission Date: 20190205
  Serious: Yes (Other)
  Sender: FDA-Public Use
  Company Number: US-BRISTOL-MYERS SQUIBB COMPANY-BMS-2018-113406

PATIENT
  Sex: Male

DRUGS (1)
  1. ELIQUIS [Suspect]
     Active Substance: APIXABAN
     Indication: THROMBOSIS PROPHYLAXIS
     Dosage: 5 MG, UNK
     Route: 048

REACTIONS (8)
  - Anaemia [Unknown]
  - Fatigue [Unknown]
  - Sleep disorder [Unknown]
  - Tinnitus [Unknown]
  - Asthenia [Unknown]
  - Nail discolouration [Unknown]
  - Haemorrhage [Unknown]
  - Product use in unapproved indication [Unknown]
